FAERS Safety Report 13939634 (Version 4)
Quarter: 2024Q3

REPORT INFORMATION
  Report Type: Spontaneous
  Country: US (occurrence: US)
  Receive Date: 20170906
  Receipt Date: 20240824
  Transmission Date: 20241016
  Serious: Yes (Other)
  Sender: ROCHE
  Company Number: US-ROCHE-1986431

PATIENT
  Age: 71 Year
  Sex: Male

DRUGS (14)
  1. MYCOPHENOLATE MOFETIL [Suspect]
     Active Substance: MYCOPHENOLATE MOFETIL
     Indication: Prophylaxis against transplant rejection
     Route: 065
  2. MYCOPHENOLATE MOFETIL [Suspect]
     Active Substance: MYCOPHENOLATE MOFETIL
     Dosage: DOSE REDUCED
     Route: 065
  3. GANCICLOVIR [Suspect]
     Active Substance: GANCICLOVIR
     Indication: Cytomegalovirus viraemia
     Dosage: 840 MG/250 ML OF D5W
     Route: 042
  4. GANCICLOVIR [Suspect]
     Active Substance: GANCICLOVIR
     Dosage: DOSE INCREASED
     Route: 042
  5. TACROLIMUS [Suspect]
     Active Substance: TACROLIMUS
     Indication: Prophylaxis against transplant rejection
     Dosage: (TROUGH GOAL 8-10 NG/ML)
     Route: 065
  6. FOSCARNET [Suspect]
     Active Substance: FOSCARNET
     Indication: Cytomegalovirus viraemia
     Dosage: ON DAY 157? FREQUENCY TEXT:EVERY 12 HOUR
     Route: 065
  7. FOSCARNET [Suspect]
     Active Substance: FOSCARNET
     Dosage: ON DAY 178? FREQUENCY TEXT:EVERY 12 HOUR
     Route: 065
  8. CIDOFOVIR [Suspect]
     Active Substance: CIDOFOVIR
     Indication: Cytomegalovirus viraemia
     Route: 065
  9. VALGANCICLOVIR [Concomitant]
     Active Substance: VALGANCICLOVIR
     Indication: Prophylaxis
  10. VALGANCICLOVIR [Concomitant]
     Active Substance: VALGANCICLOVIR
     Indication: Infection prophylaxis
  11. SULFAMETHOXAZOLE\TRIMETHOPRIM [Concomitant]
     Active Substance: SULFAMETHOXAZOLE\TRIMETHOPRIM
     Indication: Infection prophylaxis
  12. PREDNISONE [Concomitant]
     Active Substance: PREDNISONE
     Indication: Prophylaxis against transplant rejection
  13. LEFLUNOMIDE [Concomitant]
     Active Substance: LEFLUNOMIDE
  14. LEFLUNOMIDE [Concomitant]
     Active Substance: LEFLUNOMIDE

REACTIONS (4)
  - Cytomegalovirus viraemia [Recovering/Resolving]
  - Thrombocytopenia [Unknown]
  - Drug resistance [Unknown]
  - Underdose [Unknown]
